FAERS Safety Report 4754191-3 (Version None)
Quarter: 2005Q3

REPORT INFORMATION
  Report Type: 
  Country: None (occurrence: None)
  Receive Date: 20050825
  Receipt Date: 20050512
  Transmission Date: 20060218
  Serious: Yes (Other)
  Sender: FDA-Public Use
  Company Number: CTP20050011

PATIENT
  Age: 50 Year
  Sex: Female

DRUGS (3)
  1. CITALOPRAM HYDROBROMIDE [Suspect]
     Indication: DEPRESSION
     Dosage: 60 MG DAILY PO
     Route: 048
     Dates: start: 20050301
  2. ALCOHOL UNKNOWN UNKNOWN [Suspect]
     Dosage: NA PO
     Route: 048
     Dates: start: 20050425, end: 20050425
  3. XANAX [Concomitant]

REACTIONS (3)
  - ALCOHOL INTERACTION [None]
  - INTERVERTEBRAL DISC PROTRUSION [None]
  - SUICIDAL IDEATION [None]
